FAERS Safety Report 9778145 (Version 3)
Quarter: 2014Q2

REPORT INFORMATION
  Report Type: Spontaneous
  Country: GB (occurrence: GB)
  Receive Date: 20131223
  Receipt Date: 20140414
  Transmission Date: 20141212
  Serious: Yes (Life-Threatening, Hospitalization, Other)
  Sender: FDA-Public Use
  Company Number: PHFR2013GB007274

PATIENT
  Age: 60 Year
  Sex: Male
  Weight: 85 kg

DRUGS (1)
  1. CLOZARIL [Suspect]
     Indication: SCHIZOPHRENIA
     Dosage: UNK
     Route: 048
     Dates: start: 20130710

REACTIONS (10)
  - Chronic obstructive pulmonary disease [Recovering/Resolving]
  - Lower respiratory tract infection [Recovered/Resolved]
  - Malaise [Recovered/Resolved]
  - Pneumothorax [Recovered/Resolved]
  - Infectious pleural effusion [Recovered/Resolved]
  - Pneumonia [Recovered/Resolved]
  - White blood cell count increased [Unknown]
  - Neutrophil count increased [Unknown]
  - Platelet count increased [Unknown]
  - Eosinophil count increased [Unknown]
